FAERS Safety Report 7808551-4 (Version None)
Quarter: 2011Q4

REPORT INFORMATION
  Report Type: 
  Country: None (occurrence: None)
  Receive Date: 20111012
  Receipt Date: 20111003
  Transmission Date: 20120403
  Serious: Yes (Other)
  Sender: FDA-Public Use
  Company Number: JP-JNJFOC-20111003479

PATIENT
  Age: 88 Year
  Sex: Female

DRUGS (13)
  1. SPIRIVA [Concomitant]
     Route: 065
     Dates: start: 20110714
  2. RASILEZ [Concomitant]
     Route: 065
     Dates: start: 20110714
  3. FAMOTIDINE [Concomitant]
     Route: 065
     Dates: start: 20110714
  4. LEVOFLOXACIN [Suspect]
     Indication: BRONCHITIS
     Route: 065
     Dates: start: 20110802
  5. PL GRAN [Concomitant]
     Route: 065
  6. LOXONIN [Concomitant]
     Route: 065
     Dates: start: 20110714
  7. MOBIC [Concomitant]
     Route: 065
     Dates: start: 20110714
  8. MARZULENE [Concomitant]
     Route: 065
     Dates: start: 20110714
  9. WARFARIN SODIUM [Concomitant]
     Route: 065
     Dates: start: 20110714
  10. BEPRIDIL HYDROCHLORIDE [Concomitant]
     Route: 065
     Dates: start: 20110714
  11. MUCODYNE [Concomitant]
     Route: 065
  12. LASIX [Concomitant]
     Route: 065
     Dates: start: 20110714
  13. CANDESARTAN CILEXETIL [Concomitant]
     Route: 065
     Dates: start: 20110714

REACTIONS (4)
  - ABNORMAL BEHAVIOUR [None]
  - DEPRESSED LEVEL OF CONSCIOUSNESS [None]
  - DELIRIUM [None]
  - SPEECH DISORDER [None]
